FAERS Safety Report 21560504 (Version 5)
Quarter: 2022Q4

REPORT INFORMATION
  Report Type: Report from Study
  Country: CN (occurrence: CN)
  Receive Date: 20221107
  Receipt Date: 20221207
  Transmission Date: 20230112
  Serious: Yes (Death, Life-Threatening, Hospitalization, Other)
  Sender: FDA-Public Use
  Company Number: CN-BRISTOL-MYERS SQUIBB COMPANY-2022-117942

PATIENT
  Age: 72 Year
  Sex: Female
  Weight: 41 kg

DRUGS (3)
  1. AZACITIDINE [Suspect]
     Active Substance: AZACITIDINE
     Indication: Myelodysplastic syndrome
     Dosage: 7 DAYS WITHIN THE FIRST 9 CALENDAR DAYS OF EACH 28-DAY CYCLE EVERY 1 DAYS
     Route: 058
     Dates: start: 20220806, end: 20220921
  2. GLIMEPIRIDE A [Concomitant]
     Indication: Diabetes mellitus
     Dosage: EVERY 1 DAY
     Route: 065
     Dates: start: 20220902
  3. METFORMIN HYDROCHLORIDE [Concomitant]
     Active Substance: METFORMIN HYDROCHLORIDE
     Indication: Diabetes mellitus
     Dosage: EVERY 1 DAY
     Route: 065
     Dates: start: 20220902

REACTIONS (3)
  - Respiratory failure [Fatal]
  - Pneumonia [Not Recovered/Not Resolved]
  - Sepsis [Unknown]

NARRATIVE: CASE EVENT DATE: 20220915
